FAERS Safety Report 25367189 (Version 1)
Quarter: 2025Q2

REPORT INFORMATION
  Report Type: Report from Study
  Country: US (occurrence: US)
  Receive Date: 20250528
  Receipt Date: 20250528
  Transmission Date: 20250716
  Serious: Yes (Other)
  Sender: ABBVIE
  Company Number: US-ABBVIE-6296112

PATIENT
  Sex: Male

DRUGS (1)
  1. RINVOQ [Suspect]
     Active Substance: UPADACITINIB
     Indication: Colitis ulcerative
     Route: 048
     Dates: start: 20220115, end: 202307

REACTIONS (3)
  - Hepatic cirrhosis [Recovered/Resolved with Sequelae]
  - Hypercoagulation [Recovered/Resolved with Sequelae]
  - Medical procedure [Unknown]
